FAERS Safety Report 9829784 (Version 1)
Quarter: 2014Q1

REPORT INFORMATION
  Report Type: Spontaneous
  Country: JP (occurrence: JP)
  Receive Date: 20140120
  Receipt Date: 20140120
  Transmission Date: 20141002
  Serious: Yes (Other)
  Sender: FDA-Public Use
  Company Number: 2013SP006886

PATIENT
  Sex: 0

DRUGS (3)
  1. EPIRUBICIN [Suspect]
     Indication: BLADDER CANCER
     Route: 043
  2. EPIRUBICIN [Suspect]
     Indication: BLADDER CANCER
     Route: 043
  3. BCG [Suspect]
     Indication: BLADDER CANCER
     Route: 043

REACTIONS (1)
  - Anaphylactic reaction [Unknown]
